FAERS Safety Report 9002123 (Version 1)
Quarter: 2013Q1

REPORT INFORMATION
  Report Type: Spontaneous
  Country: US (occurrence: None)
  Receive Date: 20130102
  Receipt Date: 20130102
  Transmission Date: 20140127
  Serious: Yes (Other)
  Sender: FDA-Public Use
  Company Number: None

PATIENT
  Sex: Female
  Weight: 68.04 kg

DRUGS (1)
  1. CEVIMELINE HYDROCHLORIDE [Suspect]
     Indication: SJOGREN^S SYNDROME
     Dosage: 30MG   3   ORAL?@ 10/20 - 11/15
     Route: 048

REACTIONS (5)
  - Product substitution issue [None]
  - Sjogren^s syndrome [None]
  - Aptyalism [None]
  - Tongue ulceration [None]
  - Oral disorder [None]
